FAERS Safety Report 10893548 (Version 1)
Quarter: 2015Q1

REPORT INFORMATION
  Report Type: Spontaneous
  Country: US (occurrence: US)
  Receive Date: 20150306
  Receipt Date: 20150306
  Transmission Date: 20150721
  Serious: No
  Sender: FDA-Public Use
  Company Number: US-AMGEN-USASP2014043524

PATIENT
  Age: 58 Year
  Sex: Female

DRUGS (1)
  1. ENBREL [Suspect]
     Active Substance: ETANERCEPT
     Indication: RHEUMATOID ARTHRITIS
     Dosage: 50 MG, QWK
     Route: 065
     Dates: start: 20140313, end: 20140430

REACTIONS (11)
  - Drug ineffective [Unknown]
  - Arthritis [Unknown]
  - Injection site pruritus [Unknown]
  - Injection site urticaria [Unknown]
  - Skin discolouration [Unknown]
  - Arthralgia [Unknown]
  - Injection site swelling [Unknown]
  - Local swelling [Unknown]
  - Injection site pain [Unknown]
  - Pruritus [Unknown]
  - Injection site erythema [Unknown]

NARRATIVE: CASE EVENT DATE: 20140313
